FAERS Safety Report 13913719 (Version 1)
Quarter: 2017Q3

REPORT INFORMATION
  Report Type: Spontaneous
  Country: US (occurrence: US)
  Receive Date: 20170828
  Receipt Date: 20170828
  Transmission Date: 20171127
  Serious: No
  Sender: FDA-Public Use
  Company Number: US-ROCHE-1139771

PATIENT
  Sex: Male
  Weight: 78 kg

DRUGS (1)
  1. NUTROPIN AQ [Suspect]
     Active Substance: SOMATROPIN
     Indication: DWARFISM
     Dosage: 0.22MG/KG/WEEK
     Route: 058
     Dates: start: 19990726

REACTIONS (7)
  - Night sweats [Unknown]
  - Contusion [Unknown]
  - Adrenocorticotropic hormone deficiency [Unknown]
  - Headache [Unknown]
  - Diabetes insipidus [Unknown]
  - Thyroxine decreased [Unknown]
  - Obesity [Unknown]
